FAERS Safety Report 8144981-1 (Version None)
Quarter: 2012Q1

REPORT INFORMATION
  Report Type: 
  Country: None (occurrence: None)
  Receive Date: 20120217
  Receipt Date: 20120213
  Transmission Date: 20120608
  Serious: Yes (Death, Other)
  Sender: FDA-Public Use
  Company Number: US-TEVA-322488USA

PATIENT
  Sex: Male

DRUGS (2)
  1. PROPOXYPHENE NAPSYLATE W/ ACETAMINOPHEN [Suspect]
     Indication: PAIN
  2. PROPACET 100 [Suspect]
     Indication: PAIN

REACTIONS (4)
  - ARRHYTHMIA [None]
  - CARDIOVASCULAR DISORDER [None]
  - DEATH [None]
  - ATRIAL FIBRILLATION [None]
